FAERS Safety Report 21187233 (Version 1)
Quarter: 2022Q3

REPORT INFORMATION
  Report Type: Spontaneous
  Country: GB (occurrence: GB)
  Receive Date: 20220808
  Receipt Date: 20220808
  Transmission Date: 20221027
  Serious: Yes (Other)
  Sender: FDA-Public Use
  Company Number: GB-NOVARTISPH-NVSC2022GB178464

PATIENT
  Age: 49 Year
  Sex: Male

DRUGS (2)
  1. EZETIMIBE [Suspect]
     Active Substance: EZETIMIBE
     Indication: Blood cholesterol increased
     Dosage: 1 DOSAGE FORM, QD
     Route: 065
     Dates: start: 20220501, end: 20220804
  2. BEMPEDOIC ACID [Suspect]
     Active Substance: BEMPEDOIC ACID
     Indication: Blood cholesterol increased
     Dosage: 1 DOSAGE FORM, QD
     Route: 065
     Dates: start: 20220501, end: 20220804

REACTIONS (3)
  - Tendon injury [Not Recovered/Not Resolved]
  - Ligament rupture [Unknown]
  - Arthralgia [Unknown]

NARRATIVE: CASE EVENT DATE: 20220701
